FAERS Safety Report 24020071 (Version 1)
Quarter: 2024Q2

REPORT INFORMATION
  Report Type: Spontaneous
  Country: US (occurrence: US)
  Receive Date: 20240627
  Receipt Date: 20240627
  Transmission Date: 20240715
  Serious: No
  Sender: FDA-Public Use
  Company Number: US-SA-SAC20240619000320

PATIENT
  Age: 74 Year
  Sex: Female
  Weight: 88 kg

DRUGS (1)
  1. DUPIXENT [Suspect]
     Active Substance: DUPILUMAB
     Indication: Eczema herpeticum
     Dosage: 300 MG, QOW
     Route: 058
     Dates: start: 202401

REACTIONS (4)
  - Rash [Unknown]
  - Hair growth abnormal [Unknown]
  - Therapeutic response decreased [Unknown]
  - Product use in unapproved indication [Unknown]

NARRATIVE: CASE EVENT DATE: 20240101
